FAERS Safety Report 9134259 (Version 1)
Quarter: 2013Q1

REPORT INFORMATION
  Report Type: Other
  Country: SE (occurrence: SE)
  Receive Date: 20130304
  Receipt Date: 20130304
  Transmission Date: 20140127
  Serious: Yes (Hospitalization)
  Sender: FDA-Public Use
  Company Number: SE-ENDO PHARMACEUTICALS INC.-VANT20110059

PATIENT
  Sex: Male
  Weight: 92 kg

DRUGS (1)
  1. VANTAS [Suspect]
     Indication: PROSTATE CANCER
     Route: 058
     Dates: start: 20110511

REACTIONS (2)
  - Metastasis [Recovering/Resolving]
  - Muscular weakness [Recovering/Resolving]
